FAERS Safety Report 7404416-0 (Version None)
Quarter: 2011Q2

REPORT INFORMATION
  Report Type: 
  Country: None (occurrence: None)
  Receive Date: 20110408
  Receipt Date: 20110325
  Transmission Date: 20111010
  Serious: Yes (Hospitalization, Other)
  Sender: FDA-Public Use
  Company Number: FR-GENENTECH-302549

PATIENT
  Sex: Female
  Weight: 59 kg

DRUGS (3)
  1. LEVOTHYROX [Concomitant]
     Indication: PRODUCT USED FOR UNKNOWN INDICATION
  2. SYMBICORT [Concomitant]
     Indication: PRODUCT USED FOR UNKNOWN INDICATION
  3. XOLAIR [Suspect]
     Indication: ASTHMA
     Dosage: 375 MG, UNKNOWN
     Route: 065
     Dates: start: 20100217

REACTIONS (3)
  - MUSCLE SPASMS [None]
  - ACUTE FEBRILE NEUTROPHILIC DERMATOSIS [None]
  - DIARRHOEA [None]
